FAERS Safety Report 14334488 (Version 3)
Quarter: 2018Q1

REPORT INFORMATION
  Report Type: Report from Study
  Country: US (occurrence: US)
  Receive Date: 20171228
  Receipt Date: 20180201
  Transmission Date: 20180509
  Serious: Yes (Hospitalization, Other)
  Sender: FDA-Public Use
  Company Number: US-MALLINCKRODT-T201705230

PATIENT
  Sex: Male

DRUGS (1)
  1. REPOSITORY CORTICOTROPIN INJECTION [Suspect]
     Active Substance: CORTICOTROPIN
     Indication: GLOMERULONEPHRITIS MEMBRANOUS
     Dosage: 80 UNITS / 1 ML, 2 TIMES PER WEEK (MONDAY AND THURSDAY)
     Route: 058
     Dates: start: 20171113

REACTIONS (15)
  - Fluid retention [Recovering/Resolving]
  - Glomerulonephritis membranous [Unknown]
  - Apathy [Unknown]
  - Mood altered [Unknown]
  - Irritability [Unknown]
  - Peripheral swelling [Unknown]
  - Asthenia [Unknown]
  - Condition aggravated [Unknown]
  - Feeling abnormal [Unknown]
  - Weight increased [Recovering/Resolving]
  - Chest discomfort [Unknown]
  - Fatigue [Unknown]
  - Stress [Unknown]
  - Abdominal distension [Unknown]
  - Hyperglycaemia [Unknown]
